FAERS Safety Report 9447675 (Version 1)
Quarter: 2013Q3

REPORT INFORMATION
  Report Type: Report from Study
  Country: JP (occurrence: JP)
  Receive Date: 20130808
  Receipt Date: 20130808
  Transmission Date: 20140515
  Serious: Yes (Hospitalization, Disabling)
  Sender: FDA-Public Use
  Company Number: JP-AMGEN-JPNCT2013055562

PATIENT
  Age: 61 Year
  Sex: Female
  Weight: 47 kg

DRUGS (18)
  1. ROMIPLOSTIM - KHK [Suspect]
     Indication: IMMUNE THROMBOCYTOPENIC PURPURA
     Dosage: 1 MUG/KG, QWK
     Route: 058
     Dates: start: 20110816
  2. ROMIPLOSTIM - KHK [Suspect]
     Dosage: 2 MUG/KG, QD
     Route: 058
     Dates: start: 20110831
  3. ROMIPLOSTIM - KHK [Suspect]
     Dosage: 3 MUG/KG, QD
     Route: 058
     Dates: start: 20110907
  4. ROMIPLOSTIM - KHK [Suspect]
     Dosage: 4 MUG/KG, QD
     Route: 058
     Dates: start: 20110914
  5. ROMIPLOSTIM - KHK [Suspect]
     Dosage: 5 MUG/KG, QWK
     Route: 058
     Dates: start: 20110921
  6. ROMIPLOSTIM - KHK [Suspect]
     Dosage: 4 MUG/KG, QWK
     Route: 058
     Dates: start: 20111012, end: 20111012
  7. ROMIPLOSTIM - KHK [Suspect]
     Dosage: 2 MUG/KG, QWK
     Route: 058
     Dates: start: 20111203
  8. ROMIPLOSTIM - KHK [Suspect]
     Dosage: 1.5 MUG/KG, QD
     Route: 058
     Dates: start: 20111215
  9. ROMIPLOSTIM - KHK [Suspect]
     Dosage: 1 MUG/KG, QD
     Route: 058
     Dates: start: 20111222
  10. ROMIPLOSTIM - KHK [Suspect]
     Dosage: 0.8 MUG/KG, QWK
     Route: 058
     Dates: start: 20111229
  11. ROMIPLOSTIM - KHK [Suspect]
     Dosage: 0.7 MUG/KG, QWK
     Route: 058
     Dates: start: 20120112
  12. ROMIPLOSTIM - KHK [Suspect]
     Dosage: 0.6 MUG/KG, QWK
     Route: 058
     Dates: start: 20120126
  13. ROMIPLOSTIM - KHK [Suspect]
     Dosage: 0.5 MUG/KG, QD
     Route: 058
     Dates: start: 20120216
  14. PREDONINE [Concomitant]
     Indication: IMMUNE THROMBOCYTOPENIC PURPURA
     Dosage: 10 MG, UNK
     Route: 048
     Dates: start: 20110815
  15. REVOLADE [Concomitant]
     Indication: IMMUNE THROMBOCYTOPENIC PURPURA
     Dosage: 50 MG, UNK
     Route: 048
     Dates: start: 20111101, end: 20111205
  16. ALEVIATIN [Concomitant]
     Indication: EPILEPSY
     Dosage: UNK
     Route: 065
  17. BONALON [Concomitant]
     Indication: OSTEOPOROSIS
     Dosage: UNK
     Route: 065
  18. GASTER [Concomitant]
     Indication: GASTRITIS
     Dosage: UNK
     Route: 065

REACTIONS (7)
  - Renal disorder [Recovered/Resolved]
  - Platelet count decreased [Not Recovered/Not Resolved]
  - Epistaxis [Recovering/Resolving]
  - Mouth haemorrhage [Recovering/Resolving]
  - Anaemia [Not Recovered/Not Resolved]
  - Liver disorder [Recovered/Resolved]
  - Renal disorder [Not Recovered/Not Resolved]
